FAERS Safety Report 9293273 (Version 1)
Quarter: 2013Q2

REPORT INFORMATION
  Report Type: Spontaneous
  Country: CN (occurrence: CN)
  Receive Date: 20130516
  Receipt Date: 20130516
  Transmission Date: 20140414
  Serious: Yes (Other)
  Sender: FDA-Public Use
  Company Number: CN-BRISTOL-MYERS SQUIBB COMPANY-18900241

PATIENT
  Age: 29 Year
  Sex: Male

DRUGS (1)
  1. ABILIFY TABS [Suspect]
     Indication: EMOTIONAL DISORDER
     Dosage: 1DF=0.5DF
     Route: 048
     Dates: start: 20120215, end: 20120222

REACTIONS (1)
  - Gastrointestinal haemorrhage [Recovering/Resolving]
